FAERS Safety Report 4908054-0 (Version None)
Quarter: 2006Q1

REPORT INFORMATION
  Report Type: 
  Country: None (occurrence: None)
  Receive Date: 20060210
  Receipt Date: 20060130
  Transmission Date: 20060701
  Serious: Yes (Hospitalization)
  Sender: FDA-Public Use
  Company Number: DE-ROCHE-433963

PATIENT
  Age: 60 Year
  Sex: Female
  Weight: 65 kg

DRUGS (3)
  1. CAPECITABINE [Suspect]
     Route: 048
     Dates: start: 20060126, end: 20060127
  2. BEVACIZUMAB [Suspect]
     Route: 042
     Dates: start: 20060126, end: 20060127
  3. OXALIPLATIN [Suspect]
     Route: 042
     Dates: start: 20060126, end: 20060127

REACTIONS (3)
  - APHASIA [None]
  - FORMICATION [None]
  - HYPOAESTHESIA [None]
